FAERS Safety Report 5746929-3 (Version None)
Quarter: 2008Q2

REPORT INFORMATION
  Report Type: 
  Country: None (occurrence: None)
  Receive Date: 20080522
  Receipt Date: 20080512
  Transmission Date: 20081010
  Serious: Yes (Other)
  Sender: FDA-Public Use
  Company Number: PFIZER INC-2008039865

PATIENT
  Age: 67 Year
  Sex: Male

DRUGS (1)
  1. SULPERAZON [Suspect]
     Route: 042

REACTIONS (1)
  - GASTROINTESTINAL HAEMORRHAGE [None]
